FAERS Safety Report 18769855 (Version 1)
Quarter: 2021Q1

REPORT INFORMATION
  Report Type: Spontaneous
  Country: DK (occurrence: DK)
  Receive Date: 20210121
  Receipt Date: 20210121
  Transmission Date: 20210419
  Serious: Yes (Hospitalization)
  Sender: FDA-Public Use
  Company Number: DK-GUERBET-DK-20210001

PATIENT
  Age: 69 Year
  Sex: Female

DRUGS (7)
  1. CENTYL MED KALIUMKLORID [Concomitant]
     Active Substance: BENDROFLUMETHIAZIDE\POTASSIUM CHLORIDE
     Indication: HYPERTENSION
     Route: 065
     Dates: start: 2014
  2. CORODIL [Concomitant]
     Indication: HYPERTENSION
     Route: 065
     Dates: start: 202006
  3. DOTAREM [Suspect]
     Active Substance: GADOTERATE MEGLUMINE
     Indication: SCAN WITH CONTRAST
     Dosage: STRENGTH: 279.3 MG/ML?DOSAGE: UNKNOWN
     Route: 042
     Dates: start: 20201009, end: 20201009
  4. ?JENSALVE NEUTRAL ^OPHTHA^ [Concomitant]
     Indication: DRY EYE
     Route: 065
     Dates: start: 2017
  5. SERTRALINE [Concomitant]
     Active Substance: SERTRALINE HYDROCHLORIDE
     Indication: DEPRESSION
     Route: 065
     Dates: start: 2017
  6. ATORVASTATIN TEVA [Concomitant]
     Active Substance: ATORVASTATIN
     Indication: CARDIOVASCULAR EVENT PROPHYLAXIS
     Route: 065
     Dates: start: 2019
  7. VISK?SE ?JENDR?BER ^OPHTHA^ [Concomitant]
     Indication: DRY EYE
     Route: 065
     Dates: start: 2017

REACTIONS (5)
  - Nausea [Recovered/Resolved]
  - Malaise [Recovered/Resolved]
  - Oral pruritus [Recovered/Resolved]
  - Abdominal pain upper [Recovered/Resolved]
  - Erythema [Recovered/Resolved]

NARRATIVE: CASE EVENT DATE: 20201009
